FAERS Safety Report 9961347 (Version 1)
Quarter: 2014Q1

REPORT INFORMATION
  Report Type: Report from Study
  Country: US (occurrence: US)
  Receive Date: 20140305
  Receipt Date: 20140305
  Transmission Date: 20141002
  Serious: No
  Sender: FDA-Public Use
  Company Number: US-009507513-1403USA001756

PATIENT
  Age: 37 Year
  Sex: Female
  Weight: 75.74 kg

DRUGS (1)
  1. IMPLANON [Suspect]
     Dosage: UNK
     Route: 059
     Dates: start: 20120720, end: 20140304

REACTIONS (2)
  - Weight increased [Unknown]
  - Medical device removal [Recovered/Resolved]
